FAERS Safety Report 8530936 (Version 3)
Quarter: 2013Q2

REPORT INFORMATION
  Report Type: Spontaneous
  Country: US (occurrence: US)
  Receive Date: 20120426
  Receipt Date: 20130430
  Transmission Date: 20140414
  Serious: Yes (Other)
  Sender: FDA-Public Use
  Company Number: US-PFIZER INC-2012097421

PATIENT
  Age: 32 Year
  Sex: Female
  Weight: 83 kg

DRUGS (2)
  1. CRYSELLE-28 [Suspect]
     Indication: CONTRACEPTION
     Dosage: UNK
     Dates: start: 201202
  2. MULTIVITAMINS [Concomitant]

REACTIONS (3)
  - Abortion missed [Unknown]
  - Drug ineffective [Unknown]
  - Unintended pregnancy [Unknown]
